FAERS Safety Report 20568502 (Version 1)
Quarter: 2022Q1

REPORT INFORMATION
  Report Type: Report from Study
  Country: SE (occurrence: SE)
  Receive Date: 20220308
  Receipt Date: 20220308
  Transmission Date: 20220424
  Serious: Yes (Other)
  Sender: FDA-Public Use
  Company Number: SE-PFIZER INC-202200334040

PATIENT
  Age: 67 Year

DRUGS (21)
  1. RITUXIMAB [Suspect]
     Active Substance: RITUXIMAB
     Dosage: UNK
  2. TOCILIZUMAB [Suspect]
     Active Substance: TOCILIZUMAB
     Indication: Rheumatoid arthritis
     Dosage: EVERY 4 WEEKS
  3. METHOTREXATE [Concomitant]
     Active Substance: METHOTREXATE
  4. BECLOMETHASONE DIPROPIONATE [Concomitant]
     Active Substance: BECLOMETHASONE DIPROPIONATE
  5. BUDESONIDE [Concomitant]
     Active Substance: BUDESONIDE
  6. FLUTICASONE [Concomitant]
     Active Substance: FLUTICASONE
  7. FOLIC ACID [Concomitant]
     Active Substance: FOLIC ACID
  8. FORMOTEROL [Concomitant]
     Active Substance: FORMOTEROL
  9. FUROSEMIDE [Concomitant]
     Active Substance: FUROSEMIDE
  10. GABAPENTIN [Concomitant]
     Active Substance: GABAPENTIN
  11. IPRATROPIUM [Concomitant]
     Active Substance: IPRATROPIUM
  12. METFORMIN [Concomitant]
     Active Substance: METFORMIN HYDROCHLORIDE
  13. MONTELUKAST [Concomitant]
     Active Substance: MONTELUKAST SODIUM
  14. PANTOPRAZOLE [Concomitant]
     Active Substance: PANTOPRAZOLE
  15. PREDNISONE [Concomitant]
     Active Substance: PREDNISONE
  16. RANITIDINE [Concomitant]
     Active Substance: RANITIDINE
  17. ALBUTEROL [Concomitant]
     Active Substance: ALBUTEROL
  18. SALMETEROL [Concomitant]
     Active Substance: SALMETEROL
  19. SIMVASTATIN [Concomitant]
     Active Substance: SIMVASTATIN
  20. SITAGLIPTIN [Concomitant]
     Active Substance: SITAGLIPTIN
  21. WARFARIN [Concomitant]
     Active Substance: WARFARIN

REACTIONS (4)
  - Gastric perforation [Unknown]
  - Pulmonary embolism [Unknown]
  - Oesophagitis [Unknown]
  - Tongue ulceration [Unknown]
